FAERS Safety Report 15778496 (Version 5)
Quarter: 2019Q4

REPORT INFORMATION
  Report Type: Spontaneous
  Country: US (occurrence: US)
  Receive Date: 20181231
  Receipt Date: 20191122
  Transmission Date: 20200122
  Serious: Yes (Other)
  Sender: FDA-Public Use
  Company Number: US-PFIZER INC-2018535817

PATIENT
  Age: 66 Year
  Sex: Male

DRUGS (1)
  1. EFFEXOR XR [Suspect]
     Active Substance: VENLAFAXINE HYDROCHLORIDE
     Dosage: 300 MG, DAILY [STRENGTH: 150 MG/ QUANTITY FOR 90 DAYS: 180]

REACTIONS (2)
  - Suicide attempt [Unknown]
  - Prescribed overdose [Unknown]
